FAERS Safety Report 9171798 (Version 1)
Quarter: 2013Q1

REPORT INFORMATION
  Report Type: Report from Study
  Country: US (occurrence: US)
  Receive Date: 20130319
  Receipt Date: 20130319
  Transmission Date: 20140127
  Serious: Yes (Other)
  Sender: FDA-Public Use
  Company Number: US-ROCHE-1202153

PATIENT
  Sex: 0

DRUGS (6)
  1. TRASTUZUMAB [Suspect]
     Indication: NEOPLASM
     Route: 065
  2. CAPECITABINE [Suspect]
     Indication: NEOPLASM
     Route: 065
  3. CISPLATIN [Suspect]
     Indication: NEOPLASM
     Route: 065
  4. PACLITAXEL [Suspect]
     Indication: NEOPLASM
     Route: 065
  5. LAPATINIB [Suspect]
     Indication: NEOPLASM
     Route: 065
  6. MM-111 [Concomitant]

REACTIONS (8)
  - Cardiac failure congestive [Unknown]
  - Pneumothorax [Unknown]
  - Hemiparesis [Unknown]
  - Confusional state [Unknown]
  - Sepsis [Unknown]
  - Diarrhoea [Unknown]
  - Convulsion [Unknown]
  - Disease progression [Unknown]
